FAERS Safety Report 17639124 (Version 3)
Quarter: 2020Q2

REPORT INFORMATION
  Report Type: Report from Study
  Country: None (occurrence: JP)
  Receive Date: 20200407
  Receipt Date: 20200410
  Transmission Date: 20200713
  Serious: Yes (Hospitalization)
  Sender: FDA-Public Use
  Company Number: JP-ABBVIE-20P-087-3354059-00

PATIENT
  Sex: Male
  Weight: 97 kg

DRUGS (9)
  1. RINDERON VG [Concomitant]
     Active Substance: BETAMETHASONE VALERATE\GENTAMICIN SULFATE
     Indication: PRODUCT USED FOR UNKNOWN INDICATION
     Dosage: 10 GRAM
     Route: 065
     Dates: start: 20190328
  2. LYRICA [Concomitant]
     Active Substance: PREGABALIN
     Indication: BULBOSPINAL MUSCULAR ATROPHY CONGENITAL
     Dosage: 50 MILLIGRAM
     Route: 065
  3. TRANCOLON [Concomitant]
     Active Substance: MEPENZOLATE BROMIDE
     Indication: BULBOSPINAL MUSCULAR ATROPHY CONGENITAL
     Dosage: 22.5 MILLIGRAM
     Route: 065
  4. VITAMEDIN [Concomitant]
     Active Substance: CYANOCOBALAMIN\PYRIDOXINE HYDROCHLORIDE\THIAMINE
     Indication: BULBOSPINAL MUSCULAR ATROPHY CONGENITAL
     Dosage: 75 MILLIGRAM
     Route: 065
     Dates: start: 20180502
  5. LEUPLIN [Suspect]
     Active Substance: LEUPROLIDE ACETATE
     Indication: BULBOSPINAL MUSCULAR ATROPHY CONGENITAL
     Route: 058
     Dates: start: 20171101
  6. AMITIZA [Concomitant]
     Active Substance: LUBIPROSTONE
     Indication: BULBOSPINAL MUSCULAR ATROPHY CONGENITAL
     Dosage: 48 MICROGRAM
     Route: 065
     Dates: start: 20180905
  7. KINEDAK [Concomitant]
     Active Substance: EPALRESTAT
     Indication: BULBOSPINAL MUSCULAR ATROPHY CONGENITAL
     Dosage: 150 MILLIGRAM
     Route: 065
  8. MOHRUS [Concomitant]
     Active Substance: KETOPROFEN
     Indication: BULBOSPINAL MUSCULAR ATROPHY CONGENITAL
     Dosage: 20 MILLIGRAM
     Route: 065
  9. SUMILU [Concomitant]
     Active Substance: FELBINAC
     Indication: BULBOSPINAL MUSCULAR ATROPHY CONGENITAL
     Dosage: 40 GRAM
     Route: 065

REACTIONS (1)
  - Pneumonia [Unknown]
